FAERS Safety Report 5814377-3 (Version None)
Quarter: 2008Q3

REPORT INFORMATION
  Report Type: 
  Country: None (occurrence: None)
  Receive Date: 20080718
  Receipt Date: 20080708
  Transmission Date: 20090109
  Serious: Yes (Hospitalization, Other)
  Sender: FDA-Public Use
  Company Number: US-WYE-H04849008

PATIENT

DRUGS (2)
  1. TEMSIROLIMUS [Suspect]
     Route: 042
     Dates: start: 20080617, end: 20080617
  2. DOCETAXEL [Suspect]
     Route: 042
     Dates: start: 20080617, end: 20080617

REACTIONS (9)
  - DIARRHOEA [None]
  - HYPERGLYCAEMIA [None]
  - HYPONATRAEMIA [None]
  - HYPOPHOSPHATAEMIA [None]
  - LEUKOPENIA [None]
  - NAUSEA [None]
  - NEUTROPHIL COUNT DECREASED [None]
  - THROMBOCYTOPENIA [None]
  - VOMITING [None]
